FAERS Safety Report 11122138 (Version 3)
Quarter: 2015Q3

REPORT INFORMATION
  Report Type: Spontaneous
  Country: US (occurrence: US)
  Receive Date: 20150519
  Receipt Date: 20150708
  Transmission Date: 20151125
  Serious: Yes (Hospitalization, Disabling, Other)
  Sender: FDA-Public Use
  Company Number: US-009507513-1204USA00502

PATIENT
  Sex: Female

DRUGS (6)
  1. FOSAMAX [Suspect]
     Active Substance: ALENDRONATE SODIUM
     Indication: OSTEOPENIA
  2. OS-CAL + D [Concomitant]
     Dosage: 2 TABLETS, QD
     Dates: start: 2000
  3. ALENDRONATE SODIUM. [Suspect]
     Active Substance: ALENDRONATE SODIUM
     Indication: OSTEOPOROSIS
     Dosage: 70 MG, UNK
     Route: 048
     Dates: start: 200203, end: 201206
  4. ATENOLOL. [Concomitant]
     Active Substance: ATENOLOL
     Indication: HYPERTENSION
     Dosage: UNK
     Dates: start: 2000
  5. FOSAMAX [Suspect]
     Active Substance: ALENDRONATE SODIUM
     Indication: OSTEOPOROSIS
     Dosage: 70 MG, UNK
     Route: 048
     Dates: start: 200203, end: 201206
  6. ALENDRONATE SODIUM. [Suspect]
     Active Substance: ALENDRONATE SODIUM
     Indication: OSTEOPENIA

REACTIONS (21)
  - Femur fracture [Unknown]
  - Adverse event [Unknown]
  - Intramedullary rod insertion [Unknown]
  - Meningioma [Unknown]
  - Blood cholesterol increased [Unknown]
  - Cardiomegaly [Unknown]
  - Hyponatraemia [Recovering/Resolving]
  - Device breakage [Unknown]
  - Compression fracture [Unknown]
  - Deafness unilateral [Unknown]
  - Radiotherapy [Unknown]
  - Pain in extremity [Unknown]
  - Cataract operation [Unknown]
  - Fracture nonunion [Unknown]
  - Osteoarthritis [Unknown]
  - Bone disorder [Unknown]
  - Pain in extremity [Unknown]
  - Uterine disorder [Unknown]
  - Synovial cyst [Unknown]
  - Internal fixation of fracture [Unknown]
  - Acoustic neuroma [Unknown]

NARRATIVE: CASE EVENT DATE: 2002
